FAERS Safety Report 16493258 (Version 1)
Quarter: 2019Q2

REPORT INFORMATION
  Report Type: Spontaneous
  Country: US (occurrence: US)
  Receive Date: 20190628
  Receipt Date: 20190628
  Transmission Date: 20190711
  Serious: No
  Sender: FDA-Public Use
  Company Number: US-INDIVIOR LIMITED-INDV-118952-2019

PATIENT
  Age: 44 Year
  Sex: Male

DRUGS (3)
  1. LISINOPRIL. [Suspect]
     Active Substance: LISINOPRIL
     Indication: HYPERTENSION
     Dosage: 25 MILLIGRAM, UNK
     Route: 065
     Dates: start: 2017
  2. HCTZ [Suspect]
     Active Substance: HYDROCHLOROTHIAZIDE
     Indication: HYPERTENSION
     Dosage: 20 MILLIGRAM, UNK
     Route: 065
     Dates: start: 2017
  3. SUBLOCADE [Suspect]
     Active Substance: BUPRENORPHINE
     Indication: DRUG DEPENDENCE
     Dosage: 300 MILLIGRAM, QMO
     Route: 058
     Dates: start: 20190404

REACTIONS (1)
  - Drug withdrawal syndrome [Not Recovered/Not Resolved]

NARRATIVE: CASE EVENT DATE: 20190404
